FAERS Safety Report 5036793-2 (Version None)
Quarter: 2006Q2

REPORT INFORMATION
  Report Type: 
  Country: None (occurrence: None)
  Receive Date: 20060626
  Receipt Date: 20060620
  Transmission Date: 20061013
  Serious: Yes (Death, Other)
  Sender: FDA-Public Use
  Company Number: 2006063612

PATIENT
  Age: 61 Year
  Sex: Male
  Weight: 82 kg

DRUGS (2)
  1. NICORETTE [Suspect]
     Indication: SMOKING CESSATION THERAPY
     Dosage: 15MG PATCH, TRANSDERMAL
     Route: 062
     Dates: start: 20051209
  2. NICOTINE [Suspect]
     Dosage: 1MG LOZENGE, ORAL
     Route: 048
     Dates: start: 20051209

REACTIONS (4)
  - CIRCULATORY COLLAPSE [None]
  - FALL [None]
  - MYOCARDIAL INFARCTION [None]
  - OVERDOSE [None]
